FAERS Safety Report 7163942-2 (Version None)
Quarter: 2010Q4

REPORT INFORMATION
  Report Type: 
  Country: None (occurrence: None)
  Receive Date: 20101202
  Receipt Date: 20101122
  Transmission Date: 20110411
  Serious: Yes (Hospitalization)
  Sender: FDA-Public Use
  Company Number: DSU-2010-06401

PATIENT
  Age: 47 Year
  Sex: Female
  Weight: 60 kg

DRUGS (4)
  1. EVOXAC [Suspect]
     Indication: PRODUCT USED FOR UNKNOWN INDICATION
     Dosage: 600 MG (600 MG, ONCE) PER ORAL
     Route: 048
  2. LORAZEPAM (0.5 MILLIGRAM) [Concomitant]
  3. ALCOHOL (ETHANOL) [Concomitant]
  4. CITALOPRAM [Concomitant]

REACTIONS (9)
  - ALCOHOL USE [None]
  - BLOOD GLUCOSE INCREASED [None]
  - HYPERHIDROSIS [None]
  - HYPOKALAEMIA [None]
  - LEUKOCYTOSIS [None]
  - NAUSEA [None]
  - OVERDOSE [None]
  - SOMNOLENCE [None]
  - VOMITING [None]
